FAERS Safety Report 20787866 (Version 1)
Quarter: 2022Q2

REPORT INFORMATION
  Report Type: Spontaneous
  Country: US (occurrence: US)
  Receive Date: 20220505
  Receipt Date: 20220505
  Transmission Date: 20220720
  Serious: No
  Sender: FDA-Public Use
  Company Number: US-ELI_LILLY_AND_COMPANY-US202205001588

PATIENT
  Age: 71 Year
  Sex: Male

DRUGS (3)
  1. ERBITUX [Suspect]
     Active Substance: CETUXIMAB
     Indication: Product used for unknown indication
     Dosage: 500 MG, UNKNOWN
     Dates: start: 20220401
  2. ERBITUX [Suspect]
     Active Substance: CETUXIMAB
     Indication: Product used for unknown indication
     Dosage: UNK UNK, UNKNOWN
     Route: 065
     Dates: start: 20220401
  3. ERBITUX [Suspect]
     Active Substance: CETUXIMAB
     Dosage: UNK UNK, UNKNOWN
     Route: 065

REACTIONS (4)
  - Hypotension [Unknown]
  - Sensation of foreign body [Unknown]
  - Vasodilatation [Unknown]
  - Cold sweat [Unknown]

NARRATIVE: CASE EVENT DATE: 20220503
